FAERS Safety Report 6247935-5 (Version None)
Quarter: 2009Q2

REPORT INFORMATION
  Report Type: 
  Country: None (occurrence: None)
  Receive Date: 20090626
  Receipt Date: 20090615
  Transmission Date: 20091009
  Serious: Yes (Other)
  Sender: FDA-Public Use
  Company Number: GB-MYLANLABS-2009S1006809

PATIENT
  Age: 64 Year
  Sex: Male

DRUGS (7)
  1. DICLOFENAC [Suspect]
     Indication: PAIN
  2. GABAPENTIN [Concomitant]
     Indication: PAIN
  3. MORPHINE [Concomitant]
     Indication: PAIN
  4. ATENOLOL [Concomitant]
  5. DOXAZOSIN MESYLATE [Concomitant]
  6. LISINOPRIL [Concomitant]
  7. BENDROFLUMETHIAZIDE [Concomitant]

REACTIONS (4)
  - CARDIAC FAILURE [None]
  - DILATATION ATRIAL [None]
  - HEART VALVE INCOMPETENCE [None]
  - LEFT VENTRICULAR HYPERTROPHY [None]
